FAERS Safety Report 9399389 (Version 4)
Quarter: 2013Q3

REPORT INFORMATION
  Report Type: Spontaneous
  Country: NO (occurrence: None)
  Receive Date: 20130710
  Receipt Date: 20130916
  Transmission Date: 20140515
  Serious: Yes (Death, Hospitalization)
  Sender: FDA-Public Use
  Company Number: 2013192335

PATIENT
  Age: 82 Year
  Sex: Male

DRUGS (11)
  1. MEDROL [Suspect]
     Dates: start: 20121017
  2. FRAGMIN (DALTEPARIN SODIUM) SOLUTION FOR INJECTION [Suspect]
     Dates: start: 20121110
  3. RAMIPRIL [Suspect]
  4. ALBYL-E [Suspect]
     Route: 048
  5. SOMAC (PANTOPRAZOLE SODIUM) [Concomitant]
  6. LAXOBERAL [Concomitant]
  7. GALVUS (VILDAGLIPTIN) [Concomitant]
  8. INSULATARD (INSULIN HUMAN INJECTION, ISOPHANE) INJECTION [Concomitant]
  9. ACTRAPID (INSULIN) [Concomitant]
  10. MOVICOL (MACROGOL, POTASSIUM CHLORIDE, SODIUM BICARBONATE, SODIUM CHLORIDE) [Concomitant]
  11. SIMVASTATIN (SIMVASTATIN) [Concomitant]

REACTIONS (4)
  - Duodenal ulcer haemorrhage [None]
  - General physical health deterioration [None]
  - Chest pain [None]
  - Vomiting [None]
